FAERS Safety Report 9690947 (Version 1)
Quarter: 2013Q4

REPORT INFORMATION
  Report Type: Spontaneous
  Country: US (occurrence: US)
  Receive Date: 20131115
  Receipt Date: 20131115
  Transmission Date: 20140711
  Serious: Yes (Other)
  Sender: FDA-Public Use
  Company Number: US-PFIZER INC-2013325698

PATIENT
  Sex: Male

DRUGS (4)
  1. LYRICA [Suspect]
     Indication: PHANTOM PAIN
     Dosage: 150 MG, 3X/DAY
     Route: 048
     Dates: start: 2012
  2. NEXIUM [Concomitant]
     Dosage: 40 MG, UNK
  3. HYDROXYZINE [Concomitant]
     Dosage: 25 MG, UNK
  4. CITALOPRAM [Concomitant]
     Dosage: 40 MG, UNK

REACTIONS (5)
  - Off label use [Recovered/Resolved]
  - Abasia [Unknown]
  - Depression [Unknown]
  - Bedridden [Unknown]
  - Pain [Unknown]
